FAERS Safety Report 20371122 (Version 1)
Quarter: 2022Q1

REPORT INFORMATION
  Report Type: Spontaneous
  Country: GR (occurrence: GR)
  Receive Date: 20220124
  Receipt Date: 20220124
  Transmission Date: 20220423
  Serious: Yes (Life-Threatening, Hospitalization, Other)
  Sender: FDA-Public Use
  Company Number: GR-VIANEX-200060

PATIENT
  Age: 64 Year
  Sex: Male

DRUGS (4)
  1. HUMAN IMMUNOGLOBULIN G [Suspect]
     Active Substance: HUMAN IMMUNOGLOBULIN G
     Indication: Myasthenia gravis crisis
     Dosage: 400 MILLIGRAM/KILOGRAM, QD
     Route: 042
  2. PREDNISOLONE [Suspect]
     Active Substance: PREDNISOLONE
     Indication: Myasthenia gravis crisis
     Dosage: 10 MILLIGRAM, QD
     Route: 065
  3. PREDNISOLONE [Suspect]
     Active Substance: PREDNISOLONE
     Dosage: 500 MILLILITER, QD
     Route: 065
  4. PYRIDOSTIGMINE [Suspect]
     Active Substance: PYRIDOSTIGMINE
     Indication: Myasthenia gravis crisis
     Dosage: 240 MILLIGRAM, QD
     Route: 065

REACTIONS (6)
  - Pulmonary embolism [Recovered/Resolved]
  - Drug ineffective [Recovered/Resolved]
  - Tachycardia [Unknown]
  - Haemodynamic instability [Unknown]
  - Tachypnoea [Unknown]
  - Hypoxia [Unknown]
